FAERS Safety Report 13726100 (Version 1)
Quarter: 2017Q3

REPORT INFORMATION
  Report Type: Spontaneous
  Country: US (occurrence: US)
  Receive Date: 20170707
  Receipt Date: 20170707
  Transmission Date: 20171127
  Serious: Yes (Disabling, Other)
  Sender: FDA-Public Use
  Company Number: None

PATIENT
  Age: 32 Year
  Sex: Female
  Weight: 55.34 kg

DRUGS (1)
  1. TEMOZOLOMIDE 125MG TOTAL DAILY PRESCRIBED DURING 6 WEEK RADIATION COURSE ( = ONE 100MG + ONE 20 MG + ONE 5 MG CAPSULE EACH DAY) [Suspect]
     Active Substance: TEMOZOLOMIDE
     Indication: ANAPLASTIC ASTROCYTOMA
     Route: 048
     Dates: start: 20160510, end: 20160601

REACTIONS (1)
  - Bone marrow failure [None]

NARRATIVE: CASE EVENT DATE: 20160601
